FAERS Safety Report 8832007 (Version 7)
Quarter: 2015Q3

REPORT INFORMATION
  Report Type: Spontaneous
  Country: US (occurrence: US)
  Receive Date: 20121009
  Receipt Date: 20150914
  Transmission Date: 20151125
  Serious: Yes (Death, Life-Threatening, Hospitalization, Other)
  Sender: FDA-Public Use
  Company Number: US-MERCK-1210USA001136

PATIENT
  Sex: Male
  Weight: 97.52 kg

DRUGS (2)
  1. JANUVIA [Suspect]
     Active Substance: SITAGLIPTIN PHOSPHATE
     Dosage: 50 MG, BID
     Route: 048
     Dates: start: 20120223, end: 20120418
  2. JANUVIA [Suspect]
     Active Substance: SITAGLIPTIN PHOSPHATE
     Indication: TYPE 2 DIABETES MELLITUS
     Dosage: 100 MG, QD
     Route: 048
     Dates: start: 20110929, end: 201202

REACTIONS (20)
  - Abdominal pain [Recovered/Resolved]
  - Angiopathy [Unknown]
  - Hypoglycaemia [Unknown]
  - Lymphadenopathy [Unknown]
  - Gastrooesophageal reflux disease [Unknown]
  - Headache [Unknown]
  - Tumour invasion [Unknown]
  - Spinal osteoarthritis [Unknown]
  - Cyst removal [Unknown]
  - Prostatomegaly [Unknown]
  - Adenocarcinoma pancreas [Fatal]
  - Surgery [Unknown]
  - Hyponatraemia [Recovered/Resolved]
  - Gastrointestinal toxicity [Unknown]
  - Hypertension [Unknown]
  - Hyperlipidaemia [Unknown]
  - Foot operation [Unknown]
  - Constipation [Unknown]
  - Musculoskeletal pain [Recovered/Resolved]
  - Drug ineffective [Unknown]

NARRATIVE: CASE EVENT DATE: 2011
